FAERS Safety Report 13885545 (Version 2)
Quarter: 2021Q4

REPORT INFORMATION
  Report Type: Spontaneous
  Country: US (occurrence: US)
  Receive Date: 20170821
  Receipt Date: 20211001
  Transmission Date: 20220303
  Serious: No
  Sender: FDA-Public Use
  Company Number: US-PFIZER INC-2017358417

PATIENT
  Age: 48 Year
  Sex: Female
  Weight: 59.42 kg

DRUGS (3)
  1. DILANTIN [Interacting]
     Active Substance: PHENYTOIN
     Indication: Epilepsy
     Dosage: 100 MG, 4X/DAY
     Route: 048
  2. NITROFURANTOIN [Interacting]
     Active Substance: NITROFURANTOIN
     Indication: Urinary tract infection
     Dosage: UNK
  3. PROGESTERONE [Concomitant]
     Active Substance: PROGESTERONE
     Dosage: UNK, 2X/DAY

REACTIONS (2)
  - Drug interaction [Unknown]
  - Drug ineffective [Unknown]
